FAERS Safety Report 7394660-3 (Version None)
Quarter: 2011Q2

REPORT INFORMATION
  Report Type: 
  Country: None (occurrence: None)
  Receive Date: 20110405
  Receipt Date: 20110330
  Transmission Date: 20111010
  Serious: Yes (Death)
  Sender: FDA-Public Use
  Company Number: IN-BAXTER-2010BH008309

PATIENT
  Age: 72 Year
  Sex: Male

DRUGS (2)
  1. DIANEAL PD-2 W/ DEXTROSE 1.5% [Suspect]
     Indication: PERITONEAL DIALYSIS
     Route: 033
     Dates: start: 20100301, end: 20100313
  2. DIANEAL PD-2 W/ DEXTROSE 1.5% [Suspect]
     Route: 033
     Dates: start: 20100301, end: 20100313

REACTIONS (2)
  - SEPSIS [None]
  - CARDIAC ARREST [None]
